FAERS Safety Report 9411950 (Version 1)
Quarter: 2013Q3

REPORT INFORMATION
  Report Type: Report from Study
  Country: IN (occurrence: IN)
  Receive Date: 20130722
  Receipt Date: 20130722
  Transmission Date: 20140515
  Serious: Yes (Other)
  Sender: FDA-Public Use
  Company Number: IN-ROCHE-1251131

PATIENT
  Age: 28 Year
  Sex: Male
  Weight: 70 kg

DRUGS (2)
  1. EXXURA [Suspect]
     Indication: CHRONIC HEPATITIS C
     Dosage: THERAPY  INTERRUPTED
     Route: 058
     Dates: start: 20130218
  2. EXXURA [Suspect]
     Dosage: RESTARTED
     Route: 065

REACTIONS (6)
  - Pyrexia [Recovered/Resolved]
  - Vomiting [Recovered/Resolved]
  - Diarrhoea [Recovered/Resolved]
  - Asthenia [Recovered/Resolved]
  - Respiratory tract congestion [Recovered/Resolved]
  - Decreased appetite [Not Recovered/Not Resolved]
